FAERS Safety Report 11043018 (Version 1)
Quarter: 2015Q2

REPORT INFORMATION
  Report Type: Spontaneous
  Country: ES (occurrence: ES)
  Receive Date: 20150417
  Receipt Date: 20150417
  Transmission Date: 20150821
  Serious: Yes (Other)
  Sender: FDA-Public Use
  Company Number: ES-JNJFOC-20150219020

PATIENT
  Age: 9 Year

DRUGS (2)
  1. ACETYLSALICYLIC ACID [Suspect]
     Active Substance: ASPIRIN
     Indication: DRUG PROVOCATION TEST
     Dosage: 100% TCD (TCD 20 MG/KG PER DOSE)
     Route: 048
  2. IBUPROFEN. [Suspect]
     Active Substance: IBUPROFEN
     Indication: DRUG PROVOCATION TEST
     Dosage: 100% TCD (TCD 10 MG/KG PER DOSE)
     Route: 048

REACTIONS (3)
  - Product use issue [Unknown]
  - Conjunctivitis [Unknown]
  - Angioedema [Unknown]
